FAERS Safety Report 7278483-1 (Version None)
Quarter: 2011Q1

REPORT INFORMATION
  Report Type: 
  Country: None (occurrence: None)
  Receive Date: 20110207
  Receipt Date: 20110127
  Transmission Date: 20110831
  Serious: Yes (Hospitalization)
  Sender: FDA-Public Use
  Company Number: SE-BAXTER-2011BH001310

PATIENT
  Age: 63 Year
  Sex: Female

DRUGS (5)
  1. MERONEM [Suspect]
     Indication: INFECTION
     Route: 042
     Dates: start: 20101114, end: 20101116
  2. TAZOCIN [Suspect]
     Indication: INFECTION
     Route: 042
     Dates: start: 20101112, end: 20101114
  3. CYCLOPHOSPHAMIDE [Suspect]
     Indication: WEGENER'S GRANULOMATOSIS
     Route: 042
     Dates: start: 20100901, end: 20101117
  4. FENANTOIN [Suspect]
     Indication: EPILEPSY
     Route: 048
     Dates: start: 20100926, end: 20101117
  5. PREDNISOLONE [Concomitant]
     Indication: WEGENER'S GRANULOMATOSIS
     Route: 048
     Dates: start: 20100901

REACTIONS (2)
  - ACUTE RESPIRATORY DISTRESS SYNDROME [None]
  - RASH [None]
